FAERS Safety Report 6067800-6 (Version None)
Quarter: 2009Q1

REPORT INFORMATION
  Report Type: 
  Country: None (occurrence: None)
  Receive Date: 20090205
  Receipt Date: 20090129
  Transmission Date: 20090719
  Serious: Yes (Other)
  Sender: FDA-Public Use
  Company Number: GB-MERCK-0901GBR00032

PATIENT
  Age: 61 Year
  Sex: Female

DRUGS (3)
  1. FOSAMAX PLUS D [Suspect]
     Indication: OSTEOPOROSIS POSTMENOPAUSAL
     Route: 048
     Dates: start: 20060605, end: 20080301
  2. CALCIUM (UNSPECIFIED) [Concomitant]
     Route: 065
  3. VITAMIN D (UNSPECIFIED) [Concomitant]
     Route: 065

REACTIONS (4)
  - ARTHRALGIA [None]
  - GASTROOESOPHAGEAL REFLUX DISEASE [None]
  - MECHANICAL URTICARIA [None]
  - PAIN IN EXTREMITY [None]
